FAERS Safety Report 12187828 (Version 1)
Quarter: 2016Q1

REPORT INFORMATION
  Report Type: Spontaneous
  Country: US (occurrence: US)
  Receive Date: 20160317
  Receipt Date: 20160317
  Transmission Date: 20160526
  Serious: Yes (Hospitalization)
  Sender: FDA-Public Use
  Company Number: US-PFIZER INC-2016149179

PATIENT
  Age: 46 Year
  Sex: Male
  Weight: 86.17 kg

DRUGS (2)
  1. GABAPENTIN. [Suspect]
     Active Substance: GABAPENTIN
     Indication: SCIATICA
     Dosage: THREE TABLETS DAILY (800 MG)
  2. GABAPENTIN. [Suspect]
     Active Substance: GABAPENTIN
     Indication: FIBROMYALGIA
     Dosage: 800MG TABLET FOUR TIMES DAILY
     Dates: start: 2012

REACTIONS (8)
  - Speech disorder [Not Recovered/Not Resolved]
  - Drug ineffective for unapproved indication [Unknown]
  - Chronic obstructive pulmonary disease [Unknown]
  - Phantom pain [Not Recovered/Not Resolved]
  - Cognitive disorder [Not Recovered/Not Resolved]
  - Pain in extremity [Unknown]
  - Derealisation [Not Recovered/Not Resolved]
  - Frustration tolerance decreased [Unknown]

NARRATIVE: CASE EVENT DATE: 201512
